FAERS Safety Report 21005636 (Version 1)
Quarter: 2022Q2

REPORT INFORMATION
  Report Type: Spontaneous
  Country: US (occurrence: US)
  Receive Date: 20220624
  Receipt Date: 20220624
  Transmission Date: 20220721
  Serious: Yes (Hospitalization, Other)
  Sender: FDA-Public Use
  Company Number: US-INDIVIOR EUROPE LIMITED-INDV-134696-2022

PATIENT

DRUGS (3)
  1. SUBOXONE [Suspect]
     Active Substance: BUPRENORPHINE HYDROCHLORIDE\NALOXONE HYDROCHLORIDE
     Indication: Complex regional pain syndrome
     Dosage: UNK, QD
     Route: 065
     Dates: start: 2020
  2. SUBOXONE [Suspect]
     Active Substance: BUPRENORPHINE HYDROCHLORIDE\NALOXONE HYDROCHLORIDE
     Dosage: 8 MILLIGRAM, TID
     Route: 065
  3. BUPRENORPHINE HYDROCHLORIDE\NALOXONE HYDROCHLORIDE [Suspect]
     Active Substance: BUPRENORPHINE HYDROCHLORIDE\NALOXONE HYDROCHLORIDE
     Indication: Complex regional pain syndrome
     Dosage: 8 MILLIGRAM, TID
     Route: 065

REACTIONS (12)
  - Skull fracture [Recovered/Resolved]
  - Jaw fracture [Recovered/Resolved]
  - Haematoma [Recovered/Resolved]
  - Off label use [Not Recovered/Not Resolved]
  - Visual impairment [Not Recovered/Not Resolved]
  - Dental caries [Not Recovered/Not Resolved]
  - Tongue blistering [Unknown]
  - Drug ineffective for unapproved indication [Not Recovered/Not Resolved]
  - Toothache [Not Recovered/Not Resolved]
  - Oral discomfort [Not Recovered/Not Resolved]
  - Inappropriate schedule of product administration [Not Recovered/Not Resolved]
  - Headache [Unknown]

NARRATIVE: CASE EVENT DATE: 20200101
